FAERS Safety Report 16946144 (Version 4)
Quarter: 2021Q3

REPORT INFORMATION
  Report Type: Spontaneous
  Country: US (occurrence: US)
  Receive Date: 20191022
  Receipt Date: 20210726
  Transmission Date: 20211014
  Serious: No
  Sender: FDA-Public Use
  Company Number: US-PFIZER INC-2017221937

PATIENT
  Age: 46 Year
  Sex: Female
  Weight: 97.52 kg

DRUGS (14)
  1. SOMAVERT [Suspect]
     Active Substance: PEGVISOMANT
     Indication: PITUITARY TUMOUR
     Dosage: 20 MG, 1X/DAY (ONE INJECTION DAILY)
     Dates: start: 201704
  2. SANDOSTATIN LAR DEPOT [Concomitant]
     Active Substance: OCTREOTIDE ACETATE
     Indication: PITUITARY TUMOUR
  3. MELOXICAM. [Concomitant]
     Active Substance: MELOXICAM
     Dosage: UNK
  4. ESTRADIOL. [Concomitant]
     Active Substance: ESTRADIOL
     Dosage: UNK
  5. FLUTICASONE PROPIONATE. [Concomitant]
     Active Substance: FLUTICASONE PROPIONATE
     Dosage: UNK, 2X/DAY (TWO SPRAYS UP EACH NOSTRIL TWICE A DAY)
     Route: 045
     Dates: start: 201702
  6. MIRALAX [Concomitant]
     Active Substance: POLYETHYLENE GLYCOL 3350
     Indication: ABNORMAL FAECES
     Dosage: UNK, AS NEEDED (OVER THE COUNTER)
     Dates: start: 2017
  7. SOMAVERT [Suspect]
     Active Substance: PEGVISOMANT
     Indication: GIGANTISM
     Dosage: 25 MG, UNK
     Dates: start: 20171127
  8. LISINOPRIL HCTZ [Concomitant]
     Active Substance: HYDROCHLOROTHIAZIDE\LISINOPRIL
     Indication: HYPERTENSION
     Dosage: UNK, DAILY (LISINOPRIL: 20/HYDROCHLOROTHIAZIDE: 25MG, ONE TABLET BY MOUTH DAILY)
     Route: 048
  9. SANDOSTATIN LAR DEPOT [Concomitant]
     Active Substance: OCTREOTIDE ACETATE
     Indication: BRAIN NEOPLASM
     Dosage: 40 MG, UNK (ONE INJECTION EVERY 28 DAYS)
     Dates: start: 2017
  10. ADVIL [Concomitant]
     Active Substance: IBUPROFEN
     Indication: PAIN
     Dosage: 800 MG, AS NEEDED (200MG FOUR TABLETS BY MOUTH AS NEEDED)
     Route: 048
     Dates: start: 2017
  11. SOMAVERT [Suspect]
     Active Substance: PEGVISOMANT
     Indication: ACROMEGALY
     Dosage: UNK
     Dates: start: 20170905
  12. SOMAVERT [Suspect]
     Active Substance: PEGVISOMANT
     Dosage: 25 MG, DAILY
     Route: 058
     Dates: start: 20180130
  13. LEVOTHYROXINE. [Concomitant]
     Active Substance: LEVOTHYROXINE
     Indication: THYROID DISORDER
     Dosage: 125 UG, DAILY (ONE TABLET BY MOUTH DAILY)
     Route: 048
  14. SOMAVERT [Suspect]
     Active Substance: PEGVISOMANT
     Dosage: 25 MG, DAILY
     Route: 058
     Dates: start: 20171128

REACTIONS (4)
  - Fibromyalgia [Unknown]
  - Injection site mass [Unknown]
  - Drug ineffective [Unknown]
  - Arthralgia [Unknown]
